FAERS Safety Report 5139492-1 (Version None)
Quarter: 2006Q4

REPORT INFORMATION
  Report Type: 
  Country: None (occurrence: None)
  Receive Date: 20061024
  Receipt Date: 20061011
  Transmission Date: 20070319
  Serious: Yes (Other)
  Sender: FDA-Public Use
  Company Number: 2006125487

PATIENT
  Sex: Female

DRUGS (1)
  1. CHANTIX [Suspect]
     Dates: start: 20060901, end: 20060101

REACTIONS (5)
  - DIPLOPIA [None]
  - FACIAL PALSY [None]
  - HYPERTENSION [None]
  - MULTIPLE SCLEROSIS [None]
  - VERTIGO [None]
